FAERS Safety Report 5145649-6 (Version None)
Quarter: 2006Q4

REPORT INFORMATION
  Report Type: 
  Country: None (occurrence: None)
  Receive Date: 20061102
  Receipt Date: 20061024
  Transmission Date: 20070319
  Serious: Yes (Life-Threatening, Other)
  Sender: FDA-Public Use
  Company Number: 228609

PATIENT
  Age: 49 Year
  Sex: Female
  Weight: 48 kg

DRUGS (7)
  1. MABTHERA(RITUXIMAB) CONC FOR SOLUTION FOR INFUSION [Suspect]
     Indication: NON-HODGKIN'S LYMPHOMA
     Dosage: 375 MG, Q28D, INTRAVENOUS
     Route: 042
     Dates: start: 20051104, end: 20060917
  2. CYCLOPHOSPHAMIDE [Suspect]
     Indication: NON-HODGKIN'S LYMPHOMA
     Dosage: 1000 MG/M2, Q28D, INTRAVENOUS
     Route: 042
     Dates: start: 20051102
  3. FLUDARABINE PHOSPHATE [Suspect]
     Indication: NON-HODGKIN'S LYMPHOMA
     Dosage: 75 MG/M2, Q28D, INTRAVENOUS
     Route: 042
     Dates: start: 20051102
  4. SEPTRA [Concomitant]
  5. ACYCLOVIR SODIUM [Concomitant]
  6. SINTROM [Concomitant]
  7. EPO (EPOETIN ALFA) [Concomitant]

REACTIONS (3)
  - APLASTIC ANAEMIA [None]
  - BONE MARROW FAILURE [None]
  - BRONCHOPULMONARY ASPERGILLOSIS [None]
